FAERS Safety Report 10762273 (Version 2)
Quarter: 2015Q1

REPORT INFORMATION
  Report Type: Spontaneous
  Country: PL (occurrence: PL)
  Receive Date: 20150204
  Receipt Date: 20150219
  Transmission Date: 20150721
  Serious: Yes (Hospitalization, Other)
  Sender: FDA-Public Use
  Company Number: PL-TEVA-538465ISR

PATIENT
  Age: 28 Year
  Sex: Female

DRUGS (7)
  1. ETOPOSIDE. [Suspect]
     Active Substance: ETOPOSIDE
     Indication: HODGKIN^S DISEASE
  2. CYCLOPHOSPHAMIDE. [Suspect]
     Active Substance: CYCLOPHOSPHAMIDE
     Indication: HODGKIN^S DISEASE
  3. VINCRISTINE [Suspect]
     Active Substance: VINCRISTINE
     Indication: HODGKIN^S DISEASE
  4. PREDNISONE. [Suspect]
     Active Substance: PREDNISONE
     Indication: HODGKIN^S DISEASE
  5. BLEOMYCIN [Suspect]
     Active Substance: BLEOMYCIN SULFATE
     Indication: HODGKIN^S DISEASE
  6. DOXORUBICIN [Suspect]
     Active Substance: DOXORUBICIN
     Indication: HODGKIN^S DISEASE
  7. PROCARBAZINE [Suspect]
     Active Substance: PROCARBAZINE
     Indication: HODGKIN^S DISEASE

REACTIONS (2)
  - Neutropenic infection [Recovered/Resolved]
  - Gastrointestinal necrosis [Recovered/Resolved]
